FAERS Safety Report 7482403-4 (Version None)
Quarter: 2011Q2

REPORT INFORMATION
  Report Type: 
  Country: None (occurrence: None)
  Receive Date: 20110516
  Receipt Date: 20110510
  Transmission Date: 20111010
  Serious: Yes (Other)
  Sender: FDA-Public Use
  Company Number: US-PFIZER INC-2011084081

PATIENT
  Age: 11 Year
  Sex: Male

DRUGS (4)
  1. TENEX [Concomitant]
     Dosage: 1 MG, 3X/DAY
  2. GEODON [Suspect]
     Indication: AGGRESSION
     Dosage: 20 MG, 2X/DAY
     Route: 048
     Dates: start: 20040101
  3. FOCALIN [Concomitant]
     Dosage: 20 MG, 3X/DAY
  4. PROZAC [Concomitant]
     Dosage: 20 MG, 1X/DAY

REACTIONS (2)
  - DYSKINESIA [None]
  - AGITATION [None]
